FAERS Safety Report 24592422 (Version 1)
Quarter: 2024Q4

REPORT INFORMATION
  Report Type: Spontaneous
  Country: NZ (occurrence: NZ)
  Receive Date: 20241108
  Receipt Date: 20241108
  Transmission Date: 20250115
  Serious: Yes (Death)
  Sender: ROCHE
  Company Number: NZ-ROCHE-10000123922

PATIENT
  Age: 45 Year
  Sex: Female

DRUGS (1)
  1. AVASTIN [Suspect]
     Active Substance: BEVACIZUMAB
     Indication: Product used for unknown indication
     Route: 065

REACTIONS (4)
  - Mobility decreased [Fatal]
  - Metastases to lung [Fatal]
  - Cancer pain [Fatal]
  - Metastases to spine [Fatal]
